FAERS Safety Report 16875506 (Version 1)
Quarter: 2019Q4

REPORT INFORMATION
  Report Type: Spontaneous
  Country: ES (occurrence: ES)
  Receive Date: 20191002
  Receipt Date: 20191002
  Transmission Date: 20200122
  Serious: Yes (Hospitalization)
  Sender: FDA-Public Use
  Company Number: ES-BIOGEN-2019BI00791558

PATIENT
  Age: 3 Month
  Sex: Male

DRUGS (1)
  1. SPINRAZA [Suspect]
     Active Substance: NUSINERSEN
     Indication: SPINAL MUSCULAR ATROPHY
     Route: 037

REACTIONS (7)
  - Atelectasis [Unknown]
  - Productive cough [Unknown]
  - Human rhinovirus test positive [Unknown]
  - Pneumonia moraxella [Unknown]
  - Acute phase reaction [Unknown]
  - Mycoplasma test positive [Unknown]
  - Lung consolidation [Unknown]
